FAERS Safety Report 5226507-5 (Version None)
Quarter: 2007Q1

REPORT INFORMATION
  Report Type: 
  Country: None (occurrence: None)
  Receive Date: 20061201
  Receipt Date: 20061019
  Transmission Date: 20070707
  Serious: No
  Sender: FDA-Public Use
  Company Number: US200610003750

PATIENT
  Sex: Female

DRUGS (3)
  1. CYMBALTA [Suspect]
     Indication: DEPRESSION
     Dosage: 30 MG
     Dates: start: 20060101, end: 20061015
  2. PROZAC [Suspect]
     Indication: DEPRESSION
  3. ANTIHYPERTENSIVES [Concomitant]

REACTIONS (6)
  - FATIGUE [None]
  - HEADACHE [None]
  - INCREASED APPETITE [None]
  - NAUSEA [None]
  - PARAESTHESIA [None]
  - WEIGHT INCREASED [None]
